FAERS Safety Report 5054895-1 (Version None)
Quarter: 2006Q2

REPORT INFORMATION
  Report Type: 
  Country: None (occurrence: None)
  Receive Date: 20060614
  Receipt Date: 20060215
  Transmission Date: 20061013
  Serious: No
  Sender: FDA-Public Use
  Company Number: US200602003250

PATIENT
  Age: 66 Year
  Sex: Male
  Weight: 77.1 kg

DRUGS (6)
  1. CIALIS [Suspect]
     Indication: ERECTILE DYSFUNCTION
     Dosage: 10 MG
     Dates: start: 20060214
  2. SEROQUEL [Concomitant]
  3. LORAZEPAM [Concomitant]
  4. NARDIL [Concomitant]
  5. NORVASC [Concomitant]
  6. ATENOLOL [Concomitant]

REACTIONS (1)
  - THERAPEUTIC RESPONSE DECREASED [None]
